FAERS Safety Report 6254063-1 (Version None)
Quarter: 2009Q3

REPORT INFORMATION
  Report Type: 
  Country: None (occurrence: None)
  Receive Date: 20090702
  Receipt Date: 20090626
  Transmission Date: 20100115
  Serious: Yes (Hospitalization, Other)
  Sender: FDA-Public Use
  Company Number: GB-JNJFOC-20090609295

PATIENT
  Age: 61 Year
  Sex: Male
  Weight: 73 kg

DRUGS (3)
  1. TOPAMAX [Suspect]
     Indication: EPILEPSY
     Route: 048
  2. EPILIM [Concomitant]
     Route: 065
  3. ZOPICLONE [Concomitant]
     Route: 065

REACTIONS (5)
  - ANAEMIA [None]
  - HYPOALBUMINAEMIA [None]
  - INFLAMMATION [None]
  - OEDEMA [None]
  - OEDEMA PERIPHERAL [None]
